FAERS Safety Report 9214125 (Version 1)
Quarter: 2013Q1

REPORT INFORMATION
  Report Type: Spontaneous
  Country: US (occurrence: None)
  Receive Date: 20120827
  Receipt Date: 20120827
  Transmission Date: 20140127
  Serious: No
  Sender: FDA-Public Use
  Company Number: 355009

PATIENT
  Sex: Male

DRUGS (2)
  1. VICTOZA (LIRAGLUTIDE) SOLUTION FOR INJECTION, 6MG/ML [Suspect]
     Indication: PRODUCT USED FOR UNKNOWN INDICATION
     Route: 058
     Dates: start: 201204
  2. GABAPENTIN (GABAPENTIN) [Suspect]
     Dates: start: 201201

REACTIONS (4)
  - Dry throat [None]
  - Abdominal discomfort [None]
  - Abdominal pain upper [None]
  - Decreased appetite [None]
